FAERS Safety Report 26088150 (Version 1)
Quarter: 2025Q4

REPORT INFORMATION
  Report Type: Spontaneous
  Country: US (occurrence: US)
  Receive Date: 20251125
  Receipt Date: 20251125
  Transmission Date: 20260118
  Serious: No
  Sender: THE RITEDOSE CORP
  Company Number: US-THE RITEDOSE CORPORATION-2025RIT000125

PATIENT

DRUGS (1)
  1. IPRATROPIUM BROMIDE AND ALBUTEROL SULFATE [Suspect]
     Active Substance: ALBUTEROL SULFATE\IPRATROPIUM BROMIDE
     Indication: Chronic obstructive pulmonary disease
     Dosage: UNK

REACTIONS (5)
  - Migraine [Unknown]
  - Abdominal pain upper [Unknown]
  - Dyspnoea [Unknown]
  - Product dose omission issue [Unknown]
  - Therapeutic product effect variable [Unknown]

NARRATIVE: CASE EVENT DATE: 20250101
